FAERS Safety Report 7407813-2 (Version None)
Quarter: 2011Q2

REPORT INFORMATION
  Report Type: 
  Country: None (occurrence: None)
  Receive Date: 20110412
  Receipt Date: 20110328
  Transmission Date: 20111010
  Serious: Yes (Life-Threatening, Hospitalization)
  Sender: FDA-Public Use
  Company Number: PHHY2011FR25571

PATIENT
  Sex: Male

DRUGS (6)
  1. PREDNISOLONE [Concomitant]
     Dosage: 10 MG, UNK
     Dates: start: 20101018, end: 20110128
  2. AFINITOR [Suspect]
     Indication: RENAL CELL CARCINOMA
     Dosage: 10 MG
     Dates: start: 20101018, end: 20110128
  3. XANAX [Concomitant]
     Dosage: 0.25 MG, UNK
  4. ICAZ [Concomitant]
     Dosage: 5 MG, UNK
  5. TELFAST [Concomitant]
  6. LIPUR [Concomitant]
     Dosage: 900 MG, UNK

REACTIONS (3)
  - CENTRAL NERVOUS SYSTEM LESION [None]
  - HAEMORRHAGIC STROKE [None]
  - CEREBRAL HAEMATOMA [None]
